FAERS Safety Report 17859480 (Version 1)
Quarter: 2020Q2

REPORT INFORMATION
  Report Type: Spontaneous
  Country: CA (occurrence: CA)
  Receive Date: 20200604
  Receipt Date: 20200604
  Transmission Date: 20200714
  Serious: Yes (Life-Threatening, Other)
  Sender: FDA-Public Use
  Company Number: CA-BAXTER-2020BAX011561

PATIENT
  Age: 51 Year
  Sex: Female

DRUGS (6)
  1. IFEX [Suspect]
     Active Substance: IFOSFAMIDE
     Indication: ATYPICAL TERATOID/RHABDOID TUMOUR OF CNS
     Dosage: DOSAGE FORM: POWDER FOR SOLUTION INTRAVENOUS
     Route: 065
  2. CARBOPLATIN. [Suspect]
     Active Substance: CARBOPLATIN
     Dosage: DOSAGE FORM: SOLUTION INTRAVENOUS
     Route: 065
  3. ETOPOSIDE. [Suspect]
     Active Substance: ETOPOSIDE
     Indication: ATYPICAL TERATOID/RHABDOID TUMOUR OF CNS
     Dosage: DOSAGE FORM: NOT SPECIFIED
     Route: 065
  4. IFEX [Suspect]
     Active Substance: IFOSFAMIDE
     Route: 065
  5. CARBOPLATIN. [Suspect]
     Active Substance: CARBOPLATIN
     Indication: ATYPICAL TERATOID/RHABDOID TUMOUR OF CNS
     Dosage: DOSAGE FORM: SOLUTION INTRAVENOUS
     Route: 065
  6. ETOPOSIDE. [Suspect]
     Active Substance: ETOPOSIDE
     Dosage: DOSAGE FORM: NOT SPECIFIED
     Route: 065

REACTIONS (2)
  - Toxicity to various agents [Unknown]
  - Product use in unapproved indication [Unknown]
